FAERS Safety Report 5181052-0 (Version None)
Quarter: 2006Q4

REPORT INFORMATION
  Report Type: 
  Country: None (occurrence: None)
  Receive Date: 20061220
  Receipt Date: 20061109
  Transmission Date: 20070319
  Serious: Yes (Disabling)
  Sender: FDA-Public Use
  Company Number: US-BAYER-200614642BCC

PATIENT
  Age: 78 Year
  Sex: Female
  Weight: 56 kg

DRUGS (10)
  1. ALEVE [Suspect]
     Indication: ARTHRALGIA
     Dosage: TOTAL DAILY DOSE: 220 MG  UNIT DOSE: 220 MG
     Route: 048
     Dates: start: 20060901
  2. NEURONTIN [Concomitant]
     Indication: PAIN
  3. EQUATE ASPIRIN [Concomitant]
     Route: 048
  4. DEPAKOTE [Concomitant]
  5. LEVOXYL [Concomitant]
  6. CALCIUM [Concomitant]
  7. SPRING VALLY VITAMIN B COMPLEX [Concomitant]
  8. GENERIC MULTIVITAMIN [Concomitant]
  9. GENERIC STOOL SOFTENER [Concomitant]
  10. ATIVAN [Concomitant]

REACTIONS (7)
  - BALANCE DISORDER [None]
  - ERUCTATION [None]
  - FLATULENCE [None]
  - GENERAL PHYSICAL CONDITION ABNORMAL [None]
  - GENERAL PHYSICAL HEALTH DETERIORATION [None]
  - LACTOSE INTOLERANCE [None]
  - WALKING AID USER [None]
